FAERS Safety Report 10337426 (Version 1)
Quarter: 2014Q3

REPORT INFORMATION
  Report Type: Spontaneous
  Country: US (occurrence: US)
  Receive Date: 20140724
  Receipt Date: 20140724
  Transmission Date: 20150326
  Serious: Yes (Hospitalization)
  Sender: FDA-Public Use
  Company Number: US-ROCHE-1439141

PATIENT
  Sex: Female

DRUGS (3)
  1. KLONOPIN [Suspect]
     Active Substance: CLONAZEPAM
     Indication: SLEEP DISORDER
  2. KLONOPIN [Suspect]
     Active Substance: CLONAZEPAM
     Indication: PAIN
  3. KLONOPIN [Suspect]
     Active Substance: CLONAZEPAM
     Indication: VERTIGO
     Route: 065

REACTIONS (5)
  - Drug hypersensitivity [Unknown]
  - Gastrointestinal disorder [Unknown]
  - Lactose intolerance [Unknown]
  - Apparent death [Unknown]
  - Therapy change [Unknown]
